FAERS Safety Report 4721708-4 (Version None)
Quarter: 2005Q3

REPORT INFORMATION
  Report Type: 
  Country: None (occurrence: None)
  Receive Date: 20050721
  Receipt Date: 20050308
  Transmission Date: 20060218
  Serious: Yes (Hospitalization)
  Sender: FDA-Public Use
  Company Number: US-BRISTOL-MYERS SQUIBB COMPANY-12889929

PATIENT
  Age: 76 Year
  Sex: Female
  Weight: 76 kg

DRUGS (2)
  1. COUMADIN [Suspect]
     Indication: COAGULATION FACTOR VIII LEVEL ABNORMAL
     Dosage: 2.5 MG AND 5 MG ALTERNATING
  2. COZAAR [Concomitant]

REACTIONS (1)
  - HAEMORRHAGE [None]
